FAERS Safety Report 6178833-3 (Version None)
Quarter: 2009Q2

REPORT INFORMATION
  Report Type: 
  Country: None (occurrence: None)
  Receive Date: 20090504
  Receipt Date: 20090423
  Transmission Date: 20091009
  Serious: Yes (Death, Hospitalization)
  Sender: FDA-Public Use
  Company Number: US-BAXTER-2009BH006973

PATIENT
  Age: 78 Year
  Sex: Male

DRUGS (19)
  1. DIANEAL [Suspect]
     Indication: PERITONEAL DIALYSIS
     Route: 033
     Dates: start: 20080929, end: 20090308
  2. DIANEAL [Suspect]
     Indication: PERITONEAL DIALYSIS
     Route: 033
     Dates: start: 20090308, end: 20090313
  3. AMBIEN [Concomitant]
     Indication: INSOMNIA
     Route: 048
     Dates: start: 20090213
  4. DIATXZN [Concomitant]
     Indication: MEDICAL DIET
     Route: 048
     Dates: start: 20090211
  5. EPO [Concomitant]
     Indication: ANAEMIA
     Route: 058
     Dates: start: 20090211
  6. PRANDIN [Concomitant]
     Indication: HYPERGLYCAEMIA
     Route: 048
     Dates: start: 20090120
  7. LANTUS [Concomitant]
     Indication: HYPERGLYCAEMIA
     Route: 058
     Dates: start: 20081206
  8. DARVOCET-N 100 [Concomitant]
     Indication: PAIN
     Route: 048
     Dates: start: 20081105
  9. B.D. INSULIN SYRINGE [Concomitant]
     Indication: HYPERGLYCAEMIA
     Route: 058
     Dates: start: 20081024
  10. FUROSEMIDE [Concomitant]
     Indication: FLUID RETENTION
     Route: 048
     Dates: start: 20080929
  11. FINASTERIDE [Concomitant]
     Indication: BENIGN PROSTATIC HYPERPLASIA
     Route: 048
     Dates: start: 20080929
  12. PREVACID [Concomitant]
     Route: 048
     Dates: start: 20080929
  13. METOLAZONE [Concomitant]
     Indication: FLUID RETENTION
     Route: 048
     Dates: start: 20080929
  14. SIMVASTATIN [Concomitant]
     Indication: BLOOD CHOLESTEROL DECREASED
     Route: 048
     Dates: start: 20080929
  15. COREG [Concomitant]
     Indication: CARDIAC DISORDER
     Route: 048
     Dates: start: 20080929
  16. ALPRAZOLAM [Concomitant]
     Indication: ANXIETY
     Route: 048
     Dates: start: 20080929
  17. DOXEPIN HCL [Concomitant]
     Indication: ANXIETY
     Route: 048
     Dates: start: 20080929
  18. HALAZEPAM [Concomitant]
     Indication: DEPRESSION
     Route: 048
     Dates: start: 20080929
  19. PLAVIX [Concomitant]
     Indication: ANTICOAGULANT THERAPY
     Route: 048
     Dates: start: 20080929

REACTIONS (4)
  - CARDIAC DISORDER [None]
  - FALL [None]
  - HIP FRACTURE [None]
  - TRANSIENT ISCHAEMIC ATTACK [None]
